FAERS Safety Report 11020258 (Version 1)
Quarter: 2015Q2

REPORT INFORMATION
  Report Type: Report from Study
  Country: CL (occurrence: CL)
  Receive Date: 20150413
  Receipt Date: 20150413
  Transmission Date: 20150821
  Serious: Yes (Other)
  Sender: FDA-Public Use
  Company Number: CL-ROCHE-1533957

PATIENT
  Age: 59 Year
  Sex: Female
  Weight: 72 kg

DRUGS (2)
  1. LOSARTAN [Concomitant]
     Active Substance: LOSARTAN
     Indication: HYPERTENSION
     Route: 048
     Dates: start: 2010
  2. HERCEPTIN [Suspect]
     Active Substance: TRASTUZUMAB
     Indication: BREAST CANCER
     Route: 058
     Dates: start: 20140702

REACTIONS (7)
  - Neoplasm [Not Recovered/Not Resolved]
  - Pain [Not Recovered/Not Resolved]
  - Breast ulceration [Not Recovered/Not Resolved]
  - Depressed mood [Unknown]
  - Herpes zoster [Not Recovered/Not Resolved]
  - Furuncle [Unknown]
  - Drug dose omission [Unknown]

NARRATIVE: CASE EVENT DATE: 201409
